FAERS Safety Report 7653586-8 (Version None)
Quarter: 2011Q3

REPORT INFORMATION
  Report Type: 
  Country: None (occurrence: None)
  Receive Date: 20110802
  Receipt Date: 20110802
  Transmission Date: 20111222
  Serious: Yes (Hospitalization)
  Sender: FDA-Public Use
  Company Number: None

PATIENT
  Sex: Female
  Weight: 65.7716 kg

DRUGS (1)
  1. ACTONEL [Suspect]
     Indication: BONE DISORDER
     Dosage: ONE PILL 150 MG ONCE A MONTH ORAL
     Route: 048
     Dates: start: 20110615

REACTIONS (10)
  - VOMITING [None]
  - ARTHRALGIA [None]
  - DYSPEPSIA [None]
  - INFECTION [None]
  - PAIN IN EXTREMITY [None]
  - DIARRHOEA [None]
  - PYREXIA [None]
  - NAUSEA [None]
  - ABDOMINAL PAIN UPPER [None]
  - OEDEMA PERIPHERAL [None]
